FAERS Safety Report 4308996-3 (Version None)
Quarter: 2004Q1

REPORT INFORMATION
  Report Type: 
  Country: None (occurrence: None)
  Receive Date: 20040227
  Receipt Date: 20040219
  Transmission Date: 20041129
  Serious: Yes (Death)
  Sender: FDA-Public Use
  Company Number: 2003AP03905

PATIENT
  Age: 71 Year
  Sex: Male

DRUGS (18)
  1. IRESSA [Suspect]
     Indication: ADENOCARCINOMA
     Dosage: 250 MG DAILY PO
     Route: 048
     Dates: start: 20031021, end: 20031027
  2. IRESSA [Suspect]
     Indication: NON-SMALL CELL LUNG CANCER
     Dosage: 250 MG DAILY PO
     Route: 048
     Dates: start: 20031021, end: 20031027
  3. PANTOSIN [Concomitant]
  4. MAGNESIUM OXIDE [Concomitant]
  5. NOVAMIN [Concomitant]
  6. OXYCONTIN [Concomitant]
  7. ACONINSUN [Concomitant]
  8. FRANDOL [Concomitant]
  9. DIGOSIN [Concomitant]
  10. BUFFERIN [Concomitant]
  11. BASEN [Concomitant]
  12. CYANOCOBALAMIN [Concomitant]
  13. DAONIL [Concomitant]
  14. ACTOS [Concomitant]
  15. HALCION [Concomitant]
  16. PACLITAXEL [Concomitant]
  17. PARAPLATIN [Concomitant]
  18. RADIATION THERAPY [Concomitant]

REACTIONS (1)
  - INTERSTITIAL LUNG DISEASE [None]
